FAERS Safety Report 13679849 (Version 7)
Quarter: 2018Q2

REPORT INFORMATION
  Report Type: Spontaneous
  Country: IN (occurrence: IN)
  Receive Date: 20170622
  Receipt Date: 20180412
  Transmission Date: 20180711
  Serious: Yes (Other)
  Sender: FDA-Public Use
  Company Number: IN-PFIZER INC-2017047629

PATIENT
  Age: 66 Year
  Sex: Female
  Weight: 48 kg

DRUGS (14)
  1. DMR [Concomitant]
     Indication: COUGH
     Dosage: 20 MG, AS NEEDED (SOS)
  2. PALBACE [Suspect]
     Active Substance: PALBOCICLIB
     Indication: BREAST CANCER METASTATIC
     Dosage: 125 MG, ONCE A DAY
     Route: 048
     Dates: start: 20161215
  3. SUPRADYN [Concomitant]
     Active Substance: ASCORBIC ACID\MINERALS\VITAMINS
     Dosage: UNK, 1X/DAY
  4. LETROZOLE. [Concomitant]
     Active Substance: LETROZOLE
     Dosage: 2.5 MG, MONTHLY
     Route: 048
     Dates: start: 20161215
  5. MEGANEURON OD PLUS [Concomitant]
     Dosage: UNK, 1X/DAY
  6. PANTOPRAZOLE SODIUM. [Concomitant]
     Active Substance: PANTOPRAZOLE SODIUM
     Dosage: 40 MG, 2X/DAY
  7. DOLO [Concomitant]
     Indication: PYREXIA
     Dosage: 650 MG, UNK
  8. DOLO [Concomitant]
     Indication: PAIN
  9. SHELCAL [Concomitant]
     Dosage: 500 MG, 1X/DAY
  10. WYSOLONE [Concomitant]
     Active Substance: PREDNISOLONE
     Dosage: 20 MG, 1X/DAY
  11. BENZ [Concomitant]
     Dosage: UNK, 3X/DAY
  12. AB PHYLLINE [Concomitant]
     Dosage: 200 MG, 1X/DAY
  13. FEMARA [Concomitant]
     Active Substance: LETROZOLE
     Dosage: 2.5 MG, 1X/DAY
  14. PIRITON-CS [Concomitant]
     Dosage: 10 ML, 3X/DAY

REACTIONS (12)
  - Rash [Recovered/Resolved]
  - Abdominal discomfort [Unknown]
  - Pulmonary fibrosis [Recovering/Resolving]
  - Nasopharyngitis [Unknown]
  - Cough [Not Recovered/Not Resolved]
  - Fibrosis [Unknown]
  - Full blood count decreased [Recovered/Resolved]
  - Epistaxis [Unknown]
  - Neoplasm progression [Unknown]
  - Pruritus [Recovering/Resolving]
  - Haemoglobin increased [Recovered/Resolved]
  - Erythema [Unknown]

NARRATIVE: CASE EVENT DATE: 20170123
